FAERS Safety Report 9859985 (Version 1)
Quarter: 2014Q1

REPORT INFORMATION
  Report Type: Spontaneous
  Country: US (occurrence: US)
  Receive Date: 20140131
  Receipt Date: 20140131
  Transmission Date: 20141002
  Serious: Yes (Other)
  Sender: FDA-Public Use
  Company Number: US-RB-063000-14

PATIENT
  Sex: Female

DRUGS (2)
  1. BUPRENORPHINE UNSPECIFIED [Suspect]
     Indication: PRODUCT USED FOR UNKNOWN INDICATION
     Dosage: DOSING DETAILS UNKNOWN - BUP UNSPECIFIED FROM STREET
     Route: 065
     Dates: end: 2013
  2. BUPRENORPHINE UNSPECIFIED [Suspect]
     Dosage: BUP MONO - PRESCRIBED: 8-12 MG DAILY
     Route: 065
     Dates: start: 2013

REACTIONS (3)
  - Substance abuse [Recovered/Resolved]
  - Maternal exposure during pregnancy [Recovered/Resolved]
  - Amniotic cavity infection [Unknown]
